FAERS Safety Report 6231166-9 (Version None)
Quarter: 2009Q2

REPORT INFORMATION
  Report Type: 
  Country: None (occurrence: None)
  Receive Date: 20090616
  Receipt Date: 20090612
  Transmission Date: 20091009
  Serious: Yes (Death)
  Sender: FDA-Public Use
  Company Number: DE-RB-016835-09

PATIENT
  Age: 51 Year
  Sex: Male

DRUGS (2)
  1. SUBUTEX [Suspect]
     Indication: HEPATITIS C
     Dosage: DOSAGE INFORMATION NOT PROVIDED.
     Route: 065
  2. SUBOXONE [Suspect]
     Indication: DRUG THERAPY
     Route: 065

REACTIONS (1)
  - COMPLETED SUICIDE [None]
